FAERS Safety Report 10494809 (Version 1)
Quarter: 2014Q4

REPORT INFORMATION
  Report Type: Spontaneous
  Country: US (occurrence: US)
  Receive Date: 20141003
  Receipt Date: 20141003
  Transmission Date: 20150528
  Serious: No
  Sender: FDA-Public Use
  Company Number: US-BAYER-2014-145557

PATIENT
  Sex: Female

DRUGS (4)
  1. PROGESTERONE. [Concomitant]
     Active Substance: PROGESTERONE
     Dosage: 200 MG
  2. CLIMARA [Suspect]
     Active Substance: ESTRADIOL
     Indication: VULVOVAGINAL DRYNESS
  3. CLIMARA [Suspect]
     Active Substance: ESTRADIOL
     Indication: ROUTINE HEALTH MAINTENANCE
     Dosage: 0.075 MG
     Route: 062
     Dates: start: 2002
  4. CLIMARA [Suspect]
     Active Substance: ESTRADIOL
     Indication: BONE LOSS

REACTIONS (4)
  - Application site pruritus [None]
  - Product adhesion issue [None]
  - Application site irritation [None]
  - Application site erythema [None]
